FAERS Safety Report 9415754 (Version 2)
Quarter: 2013Q3

REPORT INFORMATION
  Report Type: Spontaneous
  Country: JP (occurrence: JP)
  Receive Date: 20130724
  Receipt Date: 20130920
  Transmission Date: 20140515
  Serious: Yes (Death, Hospitalization, Other)
  Sender: FDA-Public Use
  Company Number: JP-ROCHE-1225599

PATIENT
  Age: 60 Year
  Sex: Female
  Weight: 49 kg

DRUGS (9)
  1. XELODA [Suspect]
     Indication: COLON CANCER METASTATIC
     Dosage: IT IS ADMINISTER/ONE WEEKLY HOLIDAY MEDICINE FOR TWO WEEKS.
     Route: 048
     Dates: start: 20130301, end: 20130426
  2. AVASTIN [Suspect]
     Indication: COLON CANCER METASTATIC
     Route: 041
     Dates: start: 20130301, end: 20130412
  3. ELPLAT [Suspect]
     Indication: COLON CANCER METASTATIC
     Route: 041
     Dates: start: 20130301, end: 20130412
  4. GRANISETRON HYDROCHLORIDE [Concomitant]
     Indication: PROPHYLAXIS OF NAUSEA AND VOMITING
     Route: 042
     Dates: start: 20130301, end: 20130412
  5. DEXART [Concomitant]
     Indication: PROPHYLAXIS OF NAUSEA AND VOMITING
     Route: 042
     Dates: start: 20130301, end: 20130412
  6. GASTER (JAPAN) [Concomitant]
     Indication: ABDOMINAL DISCOMFORT
     Route: 042
     Dates: start: 20130301, end: 20130412
  7. EMEND [Concomitant]
     Indication: PROPHYLAXIS OF NAUSEA AND VOMITING
     Route: 048
     Dates: start: 20130301, end: 20130412
  8. EMEND [Concomitant]
     Indication: PROPHYLAXIS OF NAUSEA AND VOMITING
     Route: 048
     Dates: start: 20130302, end: 20130414
  9. GOSHAJINKIGAN [Concomitant]
     Indication: HYPOAESTHESIA
     Route: 048
     Dates: start: 20130301, end: 20130412

REACTIONS (4)
  - Platelet count decreased [Fatal]
  - Disease progression [Fatal]
  - Disseminated intravascular coagulation [Fatal]
  - Cerebral infarction [Unknown]
